FAERS Safety Report 4792604-1 (Version None)
Quarter: 2005Q4

REPORT INFORMATION
  Report Type: 
  Country: None (occurrence: None)
  Receive Date: 20051010
  Receipt Date: 20050729
  Transmission Date: 20060501
  Serious: Yes (Other)
  Sender: FDA-Public Use
  Company Number: US-MERCK-0508USA00467

PATIENT
  Age: 58 Year
  Sex: Female
  Weight: 107 kg

DRUGS (9)
  1. VIOXX [Suspect]
     Indication: PAIN
     Route: 048
  2. ZOCOR [Concomitant]
     Route: 065
  3. PHENYTOIN SODIUM [Concomitant]
     Route: 065
  4. NORVASC [Concomitant]
     Route: 065
  5. FUROSEMIDE [Concomitant]
     Route: 065
  6. WARFARIN [Concomitant]
     Route: 065
  7. PLAVIX [Concomitant]
     Route: 065
  8. HYDROCHLOROTHIAZIDE [Concomitant]
     Route: 065
  9. HYDROXYCHLOROQUINE SULFATE [Concomitant]
     Route: 065

REACTIONS (2)
  - CEREBROVASCULAR ACCIDENT [None]
  - OVERDOSE [None]
